FAERS Safety Report 8393863-9 (Version None)
Quarter: 2012Q2

REPORT INFORMATION
  Report Type: 
  Country: None (occurrence: None)
  Receive Date: 20120530
  Receipt Date: 20120524
  Transmission Date: 20120825
  Serious: Yes (Hospitalization)
  Sender: FDA-Public Use
  Company Number: FR-AMGEN-FRASP2012032444

PATIENT
  Age: 82 Year
  Sex: Female

DRUGS (2)
  1. ARANESP [Suspect]
     Dosage: 80 MUG, Q2WK
  2. ARANESP [Suspect]
     Indication: ANAEMIA
     Dosage: 80 MUG, Q3WK

REACTIONS (3)
  - PERICARDITIS [None]
  - FATIGUE [None]
  - ARRHYTHMIA [None]
